FAERS Safety Report 20031639 (Version 1)
Quarter: 2021Q4

REPORT INFORMATION
  Report Type: Spontaneous
  Country: CN (occurrence: CN)
  Receive Date: 20211103
  Receipt Date: 20211103
  Transmission Date: 20220303
  Serious: Yes (Other)
  Sender: FDA-Public Use
  Company Number: CN-ABBVIE-21K-035-4143804-00

PATIENT
  Age: 68 Year
  Sex: Male
  Weight: 89.5 kg

DRUGS (4)
  1. VENETOCLAX [Suspect]
     Active Substance: VENETOCLAX
     Indication: Acute myelomonocytic leukaemia
     Route: 048
     Dates: start: 20210928, end: 20211020
  2. VENETOCLAX [Suspect]
     Active Substance: VENETOCLAX
     Indication: C-kit gene mutation
  3. AZACITIDINE [Concomitant]
     Active Substance: AZACITIDINE
     Indication: C-kit gene mutation
     Route: 058
     Dates: start: 20210928
  4. AZACITIDINE [Concomitant]
     Active Substance: AZACITIDINE
     Indication: Acute myelomonocytic leukaemia

REACTIONS (4)
  - Myelosuppression [Unknown]
  - Neutrophil count decreased [Recovering/Resolving]
  - White blood cell count decreased [Unknown]
  - Pyrexia [Unknown]

NARRATIVE: CASE EVENT DATE: 20211014
